FAERS Safety Report 10232554 (Version 1)
Quarter: 2014Q2

REPORT INFORMATION
  Report Type: Report from Study
  Country: US (occurrence: None)
  Receive Date: 20140610
  Receipt Date: 20140610
  Transmission Date: 20141212
  Serious: Yes (Hospitalization, Other)
  Sender: FDA-Public Use
  Company Number: 2014-19635

PATIENT
  Age: 69 Year
  Sex: Male
  Weight: 99.8 kg

DRUGS (14)
  1. VEGF TRAP-EYE [Suspect]
     Indication: DIABETIC RETINAL OEDEMA
     Dosage: 2 MG MILLIGRAM(S), Q4WKS
     Dates: start: 20111201
  2. METOPROLOL (METOPROLOL) [Concomitant]
  3. ASPIRIN (ACETYLSALICYLIC ACID) [Concomitant]
  4. CLOPIDOGREL (CLOPIDOGREL) [Concomitant]
  5. TAMSULOSIN (TAMUSULOSIN) [Concomitant]
  6. NITROGLYCERIN (GLYCERYK TRINITRATE) [Concomitant]
  7. LIPITOR (ATORVASTATIN CALCIUM) [Concomitant]
  8. LEXAPRO (ESCITALOPRAM OXALATE) [Concomitant]
  9. GLIMEPIRIDE (GLIMEPIRIDE) [Concomitant]
  10. PEPCID (ALUMINIUM HYDROXIDE GEL, DRIED, MAGNESIUM CARBONATE) [Concomitant]
  11. FERREX (POLYSACCHARIDE-IRON COMPLEX) [Concomitant]
  12. TAB A VITE (ASCORBIC ACID, BETACAROTENE, CYANOCOBALAMIN, DL-ALPHA TOCOPHERYL ACETATE, ERGOCACIFEROL, FOLIC ACID, NICOTINIC ACID, PANTOTHENIC ACID, PYRIDOXINE HYDROCHLORIDE, RIBOFLAVIN, THIAMINE HYDRICHLORIDE) [Concomitant]
  13. JANUVIA (SITAGLIPTIN PHOSPHATE) [Concomitant]
  14. FUROSEMIDE (FUROSEMIDE) [Concomitant]

REACTIONS (8)
  - Acute myocardial infarction [None]
  - Coronary artery stenosis [None]
  - Cardiac failure congestive [None]
  - Dehydration [None]
  - Renal failure [None]
  - Cardiac failure [None]
  - Coronary artery disease [None]
  - Pneumonia [None]
